FAERS Safety Report 17579525 (Version 1)
Quarter: 2020Q1

REPORT INFORMATION
  Report Type: Spontaneous
  Country: FR (occurrence: FR)
  Receive Date: 20200325
  Receipt Date: 20200325
  Transmission Date: 20200409
  Serious: Yes (Hospitalization)
  Sender: FDA-Public Use
  Company Number: FR-TEVA-2020-FR-1207851

PATIENT
  Age: 86 Year
  Sex: Male
  Weight: 65 kg

DRUGS (14)
  1. CITALOPRAM [Suspect]
     Active Substance: CITALOPRAM HYDROBROMIDE
     Indication: DEPRESSION
     Dosage: 0.5 ML
     Route: 042
     Dates: start: 20200218
  2. BISOPROLOL (FUMARATE ACIDE DE) [Concomitant]
     Active Substance: BISOPROLOL FUMARATE
  3. PERINDOPRIL [Concomitant]
     Active Substance: PERINDOPRIL
  4. VENLAFAXINE [Suspect]
     Active Substance: VENLAFAXINE HYDROCHLORIDE
     Indication: DEPRESSION
     Dosage: 75 MG
     Route: 048
     Dates: end: 202003
  5. HYDROCHLOROTHIAZIDE. [Concomitant]
     Active Substance: HYDROCHLOROTHIAZIDE
  6. OXAZEPAM. [Concomitant]
     Active Substance: OXAZEPAM
  7. TAMSULOSINE [Concomitant]
     Active Substance: TAMSULOSIN HYDROCHLORIDE
  8. INNOHEP [Suspect]
     Active Substance: TINZAPARIN SODIUM
     Indication: ATRIAL FIBRILLATION
     Dosage: 10000 IU
     Route: 058
     Dates: start: 20200220
  9. DIFFU K, GELULE [Concomitant]
     Active Substance: POTASSIUM CHLORIDE
  10. ZOLPIDEM [Concomitant]
     Active Substance: ZOLPIDEM TARTRATE
  11. PARACETAMOL [Concomitant]
     Active Substance: ACETAMINOPHEN
  12. PREGABALINE [Concomitant]
     Active Substance: PREGABALIN
  13. AMPHOTERICINE B [Concomitant]
     Active Substance: AMPHOTERICIN B
  14. PANTOPRAZOLE [Concomitant]
     Active Substance: PANTOPRAZOLE

REACTIONS (5)
  - Haemorrhage [Recovered/Resolved]
  - Prothrombin time shortened [Not Recovered/Not Resolved]
  - Coagulation factor VII level decreased [Not Recovered/Not Resolved]
  - International normalised ratio increased [Not Recovered/Not Resolved]
  - Activated partial thromboplastin time prolonged [Not Recovered/Not Resolved]

NARRATIVE: CASE EVENT DATE: 20200225
